FAERS Safety Report 6151077-7 (Version None)
Quarter: 2009Q2

REPORT INFORMATION
  Report Type: 
  Country: None (occurrence: None)
  Receive Date: 20090410
  Receipt Date: 20090331
  Transmission Date: 20091009
  Serious: Yes (Hospitalization)
  Sender: FDA-Public Use
  Company Number: IT-JNJFOC-20090402592

PATIENT
  Age: 75 Year
  Sex: Female

DRUGS (1)
  1. KOLIBRI [Suspect]
     Indication: DRUG USE FOR UNKNOWN INDICATION
     Dosage: 75/650 MG
     Route: 048

REACTIONS (3)
  - NAUSEA [None]
  - OESOPHAGEAL VARICES HAEMORRHAGE [None]
  - VOMITING [None]
